FAERS Safety Report 15688008 (Version 1)
Quarter: 2018Q4

REPORT INFORMATION
  Report Type: Spontaneous
  Country: BR (occurrence: BR)
  Receive Date: 20181205
  Receipt Date: 20181205
  Transmission Date: 20190205
  Serious: Yes (Other)
  Sender: FDA-Public Use
  Company Number: BR-ROCHE-2224729

PATIENT
  Sex: Male

DRUGS (1)
  1. RIVOTRIL [Suspect]
     Active Substance: CLONAZEPAM
     Indication: EUPHORIC MOOD
     Route: 065
     Dates: start: 2013

REACTIONS (5)
  - Derealisation [Unknown]
  - Renal failure [Unknown]
  - Depersonalisation/derealisation disorder [Unknown]
  - Prostatic disorder [Unknown]
  - Insomnia [Unknown]

NARRATIVE: CASE EVENT DATE: 2017
